FAERS Safety Report 6620460-5 (Version None)
Quarter: 2010Q1

REPORT INFORMATION
  Report Type: 
  Country: None (occurrence: None)
  Receive Date: 20100309
  Receipt Date: 20100305
  Transmission Date: 20100710
  Serious: Yes (Other)
  Sender: FDA-Public Use
  Company Number: GXKR2010DE02609

PATIENT
  Sex: Female

DRUGS (1)
  1. LOPEDIUM (NGX) [Suspect]
     Indication: DIARRHOEA
     Dosage: 10-12 TABLETS PER DAY
     Route: 048

REACTIONS (1)
  - DRUG ABUSE [None]
